FAERS Safety Report 19518144 (Version 1)
Quarter: 2021Q3

REPORT INFORMATION
  Report Type: Spontaneous
  Country: FR (occurrence: FR)
  Receive Date: 20210712
  Receipt Date: 20210712
  Transmission Date: 20211014
  Serious: Yes (Hospitalization)
  Sender: FDA-Public Use
  Company Number: FR-LUPIN PHARMACEUTICALS INC.-2021-12027

PATIENT
  Sex: Male

DRUGS (16)
  1. IMMUNOGLOBULIN (IMMUNOGLOBULIN HUMAN NORMAL) [Suspect]
     Active Substance: HUMAN IMMUNOGLOBULIN G
     Indication: DELAYED HAEMOLYTIC TRANSFUSION REACTION
     Dosage: 2 GRAM PER KILOGRAM
     Route: 064
     Dates: start: 2019
  2. FOLIC ACID. [Suspect]
     Active Substance: FOLIC ACID
     Indication: HAEMOLYSIS
     Dosage: 30 MILLIGRAM, QD
     Route: 064
     Dates: start: 2019
  3. EPOETIN ALFA [Suspect]
     Active Substance: ERYTHROPOIETIN
     Indication: HAEMOLYSIS
     Dosage: 50 INTERNATIONAL UNIT/KILOGRAM, THREE PER WEEK
     Route: 064
     Dates: start: 2019
  4. METHYLPREDNISOLONE. [Suspect]
     Active Substance: METHYLPREDNISOLONE
     Indication: DELAYED HAEMOLYTIC TRANSFUSION REACTION
  5. IMMUNOGLOBULIN (IMMUNOGLOBULIN HUMAN NORMAL) [Suspect]
     Active Substance: HUMAN IMMUNOGLOBULIN G
     Indication: HAEMOLYSIS
  6. ERYTHROPOIETIN [Suspect]
     Active Substance: ERYTHROPOIETIN
     Indication: HAEMOLYSIS
     Dosage: RECOMBINANT EPO INJECTIONS
     Route: 064
     Dates: start: 2019
  7. DARBEPOETIN ALFA [Suspect]
     Active Substance: DARBEPOETIN ALFA
     Indication: DELAYED HAEMOLYTIC TRANSFUSION REACTION
  8. ECULIZUMAB [Suspect]
     Active Substance: ECULIZUMAB
     Indication: HAEMOLYSIS
     Dosage: ON DAY 1 AND DAY 7
     Route: 064
     Dates: start: 2019
  9. METHYLPREDNISOLONE. [Suspect]
     Active Substance: METHYLPREDNISOLONE
     Indication: HAEMOLYSIS
     Dosage: 250 MILLIGRAM, QD
     Route: 064
     Dates: start: 2019
  10. DARBEPOETIN ALFA [Suspect]
     Active Substance: DARBEPOETIN ALFA
     Indication: HAEMOLYSIS
     Dosage: 300 MICROGRAM PER WEEK
     Route: 064
     Dates: start: 2019
  11. PNEUMOCOCCAL VACCINE POLYVALENT NOS [Suspect]
     Active Substance: PNEUMOCOCCAL VACCINE POLYVALENT
     Indication: IMMUNISATION
     Dosage: UNK
     Route: 064
  12. ECULIZUMAB [Suspect]
     Active Substance: ECULIZUMAB
     Indication: DELAYED HAEMOLYTIC TRANSFUSION REACTION
  13. RITUXIMAB. [Suspect]
     Active Substance: RITUXIMAB
     Indication: HAEMOLYSIS
  14. EPOETIN ALFA [Suspect]
     Active Substance: ERYTHROPOIETIN
     Indication: DELAYED HAEMOLYTIC TRANSFUSION REACTION
  15. FERRIC HYDROXIDE [Suspect]
     Active Substance: FERRIC HYDROXIDE
     Indication: HAEMOLYSIS
     Dosage: 100 MILLIGRAM
     Route: 064
     Dates: start: 2019
  16. RITUXIMAB. [Suspect]
     Active Substance: RITUXIMAB
     Indication: DELAYED HAEMOLYTIC TRANSFUSION REACTION
     Dosage: 375 MILLIGRAM/SQ. METER, ON DAYS 1, 4, 8 AND 12.
     Route: 064
     Dates: start: 2019

REACTIONS (3)
  - Low birth weight baby [Unknown]
  - Foetal exposure during pregnancy [Unknown]
  - Premature baby [Unknown]

NARRATIVE: CASE EVENT DATE: 2019
